FAERS Safety Report 8614197-0 (Version None)
Quarter: 2012Q3

REPORT INFORMATION
  Report Type: 
  Country: None (occurrence: None)
  Receive Date: 20120813
  Receipt Date: 20120813
  Transmission Date: 20120928
  Serious: Yes (Hospitalization)
  Sender: FDA-Public Use
  Company Number: None

PATIENT
  Age: 88 Year
  Sex: Male
  Weight: 82.2 kg

DRUGS (2)
  1. WARFARIN SODIUM [Suspect]
     Indication: CORONARY ARTERY DISEASE
     Dosage: 5 MG OTHER PO
     Route: 048
     Dates: start: 20120329
  2. WARFARIN SODIUM [Suspect]
     Indication: DEEP VEIN THROMBOSIS
     Dosage: 5 MG OTHER PO
     Route: 048
     Dates: start: 20120329

REACTIONS (3)
  - HAEMORRHAGE [None]
  - DISEASE RECURRENCE [None]
  - ABDOMINAL WALL HAEMATOMA [None]
